FAERS Safety Report 4543192-6 (Version None)
Quarter: 2004Q4

REPORT INFORMATION
  Report Type: 
  Country: None (occurrence: None)
  Receive Date: 20041230
  Receipt Date: 20041230
  Transmission Date: 20050328
  Serious: Yes (Hospitalization)
  Sender: FDA-Public Use
  Company Number: None

PATIENT
  Sex: Female
  Weight: 52.1637 kg

DRUGS (1)
  1. CYMBALTA [Suspect]
     Dosage: 30MG  1/2 WEEKS
     Dates: start: 20041210, end: 20041214

REACTIONS (11)
  - ABDOMINAL PAIN [None]
  - ABDOMINAL PAIN UPPER [None]
  - ADVERSE DRUG REACTION [None]
  - BLOOD PRESSURE ABNORMAL [None]
  - CONTUSION [None]
  - DYSKINESIA [None]
  - DYSTONIA [None]
  - HEART RATE INCREASED [None]
  - INSOMNIA [None]
  - LOOSE STOOLS [None]
  - MUSCLE DISORDER [None]
